FAERS Safety Report 7360930-8 (Version None)
Quarter: 2011Q1

REPORT INFORMATION
  Report Type: 
  Country: None (occurrence: None)
  Receive Date: 20110315
  Receipt Date: 20110315
  Transmission Date: 20110831
  Serious: Yes (Hospitalization)
  Sender: FDA-Public Use
  Company Number: None

PATIENT
  Sex: Female
  Weight: 50 kg

DRUGS (6)
  1. ZYRTEC [Concomitant]
  2. DILAUDID [Concomitant]
  3. SENSIPAR [Concomitant]
  4. NEPHRO-VITE [Concomitant]
  5. RENAGEL [Concomitant]
  6. GAMUNEX [Suspect]
     Indication: IMMUNE TOLERANCE INDUCTION
     Dosage: 100 GM ONCE IV
     Route: 042
     Dates: start: 20110302

REACTIONS (3)
  - MEDICAL DEVICE COMPLICATION [None]
  - CHILLS [None]
  - BACTERAEMIA [None]
